FAERS Safety Report 24052552 (Version 1)
Quarter: 2024Q3

REPORT INFORMATION
  Report Type: Report from Study
  Country: CA (occurrence: CA)
  Receive Date: 20240705
  Receipt Date: 20240705
  Transmission Date: 20241017
  Serious: Yes (Hospitalization, Other)
  Sender: ABBVIE
  Company Number: CA-ABBVIE-5825067

PATIENT
  Age: 50 Year

DRUGS (1)
  1. RINVOQ [Suspect]
     Active Substance: UPADACITINIB
     Indication: Crohn^s disease
     Route: 048
     Dates: start: 20240405

REACTIONS (5)
  - Proctalgia [Recovering/Resolving]
  - Surgery [Unknown]
  - Anal fistula [Unknown]
  - Drain placement [Unknown]
  - Fistula discharge [Unknown]

NARRATIVE: CASE EVENT DATE: 20240101
